FAERS Safety Report 8489373-0 (Version None)
Quarter: 2012Q3

REPORT INFORMATION
  Report Type: 
  Country: None (occurrence: None)
  Receive Date: 20120705
  Receipt Date: 20120626
  Transmission Date: 20120928
  Serious: Yes (Other)
  Sender: FDA-Public Use
  Company Number: BR-ASTRAZENECA-2012SE43542

PATIENT
  Age: 89 Year
  Sex: Female

DRUGS (8)
  1. ATACAND [Suspect]
     Indication: HYPERTENSION
     Route: 048
     Dates: start: 20020101
  2. ALLOPURINOL [Concomitant]
     Indication: BLOOD URIC ACID ABNORMAL
     Route: 048
  3. OCCUVIT [Concomitant]
     Route: 048
  4. NEBIVOLOL HCL [Concomitant]
     Route: 048
  5. LASIX [Concomitant]
     Route: 048
  6. SEROQUEL [Suspect]
     Indication: DEMENTIA ALZHEIMER'S TYPE
     Route: 048
     Dates: start: 20080101
  7. DALMODORM [Concomitant]
     Indication: INSOMNIA
     Route: 048
  8. OMEPRAZOLE [Suspect]
     Indication: ABDOMINAL DISCOMFORT
     Dosage: DAILY FREQUENCY
     Route: 048

REACTIONS (2)
  - DEMENTIA ALZHEIMER'S TYPE [None]
  - OFF LABEL USE [None]
